FAERS Safety Report 5794481-9 (Version None)
Quarter: 2008Q2

REPORT INFORMATION
  Report Type: 
  Country: None (occurrence: None)
  Receive Date: 20080626
  Receipt Date: 20080626
  Transmission Date: 20081010
  Serious: Yes (Other)
  Sender: FDA-Public Use
  Company Number: None

PATIENT
  Sex: Male

DRUGS (1)
  1. TUBERSOL [Suspect]
     Indication: TUBERCULIN TEST

REACTIONS (3)
  - INJECTION SITE IRRITATION [None]
  - INJECTION SITE SWELLING [None]
  - INJECTION SITE URTICARIA [None]
